APPROVED DRUG PRODUCT: OXCARBAZEPINE
Active Ingredient: OXCARBAZEPINE
Strength: 300MG/5ML
Dosage Form/Route: SUSPENSION;ORAL
Application: A211420 | Product #001
Applicant: PAI HOLDINGS LLC DBA PHARMACEUTICAL ASSOCIATES INC AND DBA PAI PHARMA
Approved: Jul 9, 2021 | RLD: No | RS: No | Type: DISCN